FAERS Safety Report 19046791 (Version 1)
Quarter: 2021Q1

REPORT INFORMATION
  Report Type: Report from Study
  Country: None (occurrence: BE)
  Receive Date: 20210322
  Receipt Date: 20210322
  Transmission Date: 20210420
  Serious: Yes (Hospitalization, Other)
  Sender: FDA-Public Use
  Company Number: BE-ABBVIE-21K-013-3824336-00

PATIENT
  Age: 69 Year
  Sex: Female

DRUGS (4)
  1. DUODOPA [Suspect]
     Active Substance: CARBIDOPA\LEVODOPA
     Indication: PARKINSON^S DISEASE
     Dosage: UNKNOWN DOSAGES
     Route: 050
     Dates: start: 20180122, end: 20200709
  2. DUODOPA [Suspect]
     Active Substance: CARBIDOPA\LEVODOPA
     Dosage: MD=7.3ML, CD=3.8ML/HR DURING 16HRS, ED=1.5ML
     Route: 050
     Dates: start: 20210129, end: 20210202
  3. DUODOPA [Suspect]
     Active Substance: CARBIDOPA\LEVODOPA
     Dosage: MD=7.3ML, CD=3.6ML/HR DURING 16HRS, ED=1.5ML
     Route: 050
     Dates: start: 20200707, end: 20210129
  4. DUODOPA [Suspect]
     Active Substance: CARBIDOPA\LEVODOPA
     Dosage: MD=7.3ML, CD=3.4ML/HR DURING 16HRS, ED=1.5ML
     Route: 050
     Dates: start: 20210202

REACTIONS (1)
  - Spinal operation [Unknown]
